FAERS Safety Report 5334265-9 (Version None)
Quarter: 2007Q2

REPORT INFORMATION
  Report Type: 
  Country: None (occurrence: None)
  Receive Date: 20070523
  Receipt Date: 20070523
  Transmission Date: 20071010
  Serious: Yes (Other)
  Sender: FDA-Public Use
  Company Number: None

PATIENT
  Age: 36 Year
  Sex: Female
  Weight: 50.8029 kg

DRUGS (1)
  1. ACYCLOVIR [Suspect]
     Indication: GENITAL HERPES
     Dosage: 400 MG TWICE PER DAY PO
     Route: 048
     Dates: start: 20070518, end: 20070522

REACTIONS (2)
  - BLOOD URINE [None]
  - PARAESTHESIA [None]
